FAERS Safety Report 17775430 (Version 3)
Quarter: 2024Q3

REPORT INFORMATION
  Report Type: Report from Study
  Country: US (occurrence: US)
  Receive Date: 20200513
  Receipt Date: 20240716
  Transmission Date: 20241017
  Serious: Yes (Death, Hospitalization, Other)
  Sender: ACADIA PHARMACEUTICALS
  Company Number: US-ACADIA PHARMACEUTICALS INC.-ACA-2020-PIM-000828

PATIENT
  Age: 66 Year
  Sex: Male

DRUGS (18)
  1. NUPLAZID [Suspect]
     Active Substance: PIMAVANSERIN TARTRATE
     Indication: Parkinson^s disease
     Dosage: 34 MILLIGRAM, QD
     Route: 048
     Dates: start: 202002, end: 202003
  2. NUPLAZID [Suspect]
     Active Substance: PIMAVANSERIN TARTRATE
     Indication: Hallucination
     Dosage: 34 MILLIGRAM, QD
     Route: 048
     Dates: start: 202004
  3. NUPLAZID [Suspect]
     Active Substance: PIMAVANSERIN TARTRATE
     Indication: Delusion
  4. CARBIDOPA\LEVODOPA [Concomitant]
     Active Substance: CARBIDOPA\LEVODOPA
     Indication: Parkinson^s disease
     Dosage: TABLET (50-200 MG) BY MOUTH 5 TIMES A DAY
     Route: 048
  5. MILK OF MAGNESIA [Concomitant]
     Active Substance: MAGNESIUM HYDROXIDE
     Indication: Product used for unknown indication
     Dosage: TAKE 30 ML BY MOUTH AT BEDTIME AS NEEDED
  6. MIRALAX [Concomitant]
     Active Substance: POLYETHYLENE GLYCOL 3350
     Indication: Product used for unknown indication
     Dosage: 17 G, QD
     Route: 048
  7. VITAMIN B COMPLEX [Concomitant]
     Active Substance: CYANOCOBALAMIN\DEXPANTHENOL\NIACINAMIDE\PYRIDOXINE HYDROCHLORIDE\RIBOFLAVIN 5^-PHOSPHATE SODIUM\THIA
     Indication: Product used for unknown indication
     Dosage: UNK, QD
     Route: 048
  8. PROSCAR [Concomitant]
     Active Substance: FINASTERIDE
     Indication: Benign prostatic hyperplasia
     Dosage: 5 MILLIGRAM, EVERY EVENING
     Route: 048
  9. UROXATRAL [Concomitant]
     Active Substance: ALFUZOSIN HYDROCHLORIDE
     Indication: Benign prostatic hyperplasia
     Dosage: 10 MILLIGRAM, QD
     Route: 048
  10. SYMMETREL [Concomitant]
     Active Substance: AMANTADINE HYDROCHLORIDE
     Indication: Parkinson^s disease
     Dosage: 100 MILLIGRAM, BID
     Route: 048
  11. COLACE [Concomitant]
     Active Substance: DOCUSATE SODIUM
     Indication: Product used for unknown indication
     Dosage: 100 MILLIGRAM, BID
     Route: 048
  12. ACETYLCYSTEINE [Concomitant]
     Active Substance: ACETYLCYSTEINE
     Indication: Product used for unknown indication
     Dosage: TAKE 600 MG EVERY 12 HOURS.
     Route: 048
  13. SEROQUEL [Concomitant]
     Active Substance: QUETIAPINE FUMARATE
     Indication: Parkinson^s disease
     Dosage: 12.5 MG TABLET AT BEDTIME
     Route: 048
  14. SEROQUEL [Concomitant]
     Active Substance: QUETIAPINE FUMARATE
     Indication: Dementia
  15. SEROQUEL [Concomitant]
     Active Substance: QUETIAPINE FUMARATE
     Indication: Behaviour disorder
  16. EXELON [Concomitant]
     Active Substance: RIVASTIGMINE TARTRATE
     Indication: Parkinson^s disease
     Dosage: APPLY 1 PATCH 4.6 MG
     Route: 061
  17. EXELON [Concomitant]
     Active Substance: RIVASTIGMINE TARTRATE
     Indication: Dementia
  18. EXELON [Concomitant]
     Active Substance: RIVASTIGMINE TARTRATE
     Indication: Behaviour disorder

REACTIONS (6)
  - Death [Fatal]
  - Femur fracture [Recovering/Resolving]
  - Psychomotor hyperactivity [Unknown]
  - Product dose omission issue [Unknown]
  - Fall [Unknown]
  - Hallucination [Unknown]

NARRATIVE: CASE EVENT DATE: 20200223
